FAERS Safety Report 19435746 (Version 2)
Quarter: 2022Q2

REPORT INFORMATION
  Report Type: Spontaneous
  Country: US (occurrence: US)
  Receive Date: 20210618
  Receipt Date: 20220610
  Transmission Date: 20220721
  Serious: Yes (Other)
  Sender: FDA-Public Use
  Company Number: US-GILEAD-2021-0536641

PATIENT
  Sex: Male
  Weight: 111.79 kg

DRUGS (24)
  1. VIREAD [Suspect]
     Active Substance: TENOFOVIR DISOPROXIL FUMARATE
     Indication: HIV infection
     Dosage: UNK
     Route: 048
     Dates: start: 2001
  2. VIREAD [Suspect]
     Active Substance: TENOFOVIR DISOPROXIL FUMARATE
     Dosage: UNK
     Route: 048
     Dates: start: 201311, end: 201504
  3. STRIBILD [Suspect]
     Active Substance: COBICISTAT\ELVITEGRAVIR\EMTRICITABINE\TENOFOVIR DISOPROXIL FUMARATE
     Indication: HIV infection
     Dosage: UNK
     Route: 065
     Dates: start: 201508, end: 201604
  4. ODEFSEY [Concomitant]
     Active Substance: EMTRICITABINE\RILPIVIRINE HYDROCHLORIDE\TENOFOVIR ALAFENAMIDE FUMARATE
  5. EPIVIR [Concomitant]
     Active Substance: LAMIVUDINE
  6. INTELENCE [Concomitant]
     Active Substance: ETRAVIRINE
  7. ISENTRESS [Concomitant]
     Active Substance: RALTEGRAVIR POTASSIUM
  8. KALETRA [Concomitant]
     Active Substance: LOPINAVIR\RITONAVIR
  9. NORVIR [Concomitant]
     Active Substance: RITONAVIR
  10. PREZISTA [Concomitant]
     Active Substance: DARUNAVIR ETHANOLATE
  11. RETROVIR [Concomitant]
     Active Substance: ZIDOVUDINE
  12. REYATAZ [Concomitant]
     Active Substance: ATAZANAVIR SULFATE
  13. TIVICAY [Concomitant]
     Active Substance: DOLUTEGRAVIR SODIUM
  14. TRIZIVIR [Concomitant]
     Active Substance: ABACAVIR SULFATE\LAMIVUDINE\ZIDOVUDINE
  15. ZIAGEN [Concomitant]
     Active Substance: ABACAVIR SULFATE
  16. ATORVASTATIN [Concomitant]
     Active Substance: ATORVASTATIN
  17. LISINOPRIL [Concomitant]
     Active Substance: LISINOPRIL
  18. METOPROLOL [Concomitant]
     Active Substance: METOPROLOL
  19. ENTRESTO [Concomitant]
     Active Substance: SACUBITRIL\VALSARTAN
  20. FLUOXETINE [Concomitant]
     Active Substance: FLUOXETINE HYDROCHLORIDE
  21. QUETIAPINE [Concomitant]
     Active Substance: QUETIAPINE
  22. ASPIRIN [Concomitant]
     Active Substance: ASPIRIN
  23. CLOPIDOGREL [Concomitant]
     Active Substance: CLOPIDOGREL BISULFATE
  24. NITROGLYCERIN [Concomitant]
     Active Substance: NITROGLYCERIN

REACTIONS (16)
  - Osteoporosis [Unknown]
  - Chronic kidney disease [Not Recovered/Not Resolved]
  - Renal impairment [Unknown]
  - Bone density decreased [Unknown]
  - Foot fracture [Unknown]
  - Pain [Not Recovered/Not Resolved]
  - Emotional distress [Not Recovered/Not Resolved]
  - Anxiety [Not Recovered/Not Resolved]
  - Anhedonia [Not Recovered/Not Resolved]
  - Osteopenia [Not Recovered/Not Resolved]
  - Renal pain [Unknown]
  - Stress fracture [Unknown]
  - Skeletal injury [Unknown]
  - Bone pain [Unknown]
  - Dysstasia [Not Recovered/Not Resolved]
  - Gait disturbance [Not Recovered/Not Resolved]

NARRATIVE: CASE EVENT DATE: 20160101
